FAERS Safety Report 4884727-3 (Version None)
Quarter: 2006Q1

REPORT INFORMATION
  Report Type: 
  Country: None (occurrence: None)
  Receive Date: 20060119
  Receipt Date: 20051116
  Transmission Date: 20060701
  Serious: Yes (Hospitalization)
  Sender: FDA-Public Use
  Company Number: GB-BRISTOL-MYERS SQUIBB COMPANY-13205711

PATIENT
  Age: 38 Year
  Sex: Female
  Weight: 127 kg

DRUGS (4)
  1. ABILIFY [Suspect]
     Indication: PSYCHOTIC DISORDER
     Route: 048
     Dates: start: 20041130, end: 20041210
  2. OLANZAPINE [Concomitant]
  3. RISPERIDONE [Concomitant]
     Indication: PSYCHOTIC DISORDER
     Route: 048
     Dates: start: 20040101, end: 20041115
  4. VALPROATE SODIUM [Concomitant]
     Indication: AFFECTIVE DISORDER
     Dosage: DOSAGE: 1000/1500 (UNIT UNSPECIFIED)
     Route: 048
     Dates: start: 20040101, end: 20040701

REACTIONS (9)
  - AGITATION [None]
  - AKATHISIA [None]
  - GRANDIOSITY [None]
  - INSOMNIA [None]
  - IRRITABILITY [None]
  - PERSECUTORY DELUSION [None]
  - PSYCHOTIC DISORDER [None]
  - RESTLESSNESS [None]
  - THINKING ABNORMAL [None]
